FAERS Safety Report 14402432 (Version 1)
Quarter: 2018Q1

REPORT INFORMATION
  Report Type: Spontaneous
  Country: US (occurrence: US)
  Receive Date: 20180116
  Receipt Date: 20180116
  Transmission Date: 20180509
  Serious: Yes (Life-Threatening, Hospitalization, Disabling, Other)
  Sender: FDA-Public Use
  Company Number: None

PATIENT
  Age: 33 Year
  Sex: Female
  Weight: 72 kg

DRUGS (3)
  1. DUPIXENT [Concomitant]
     Active Substance: DUPILUMAB
  2. CYCLOSPORIN [Concomitant]
     Active Substance: CYCLOSPORINE
  3. TRIAMCINOLONE [Suspect]
     Active Substance: TRIAMCINOLONE
     Indication: ECZEMA
     Dosage: ?          QUANTITY:1 OUNCE(S);?
     Route: 061

REACTIONS (3)
  - Therapy non-responder [None]
  - Red man syndrome [None]
  - Withdrawal syndrome [None]

NARRATIVE: CASE EVENT DATE: 20140601
